FAERS Safety Report 5010230-6 (Version None)
Quarter: 2006Q2

REPORT INFORMATION
  Report Type: 
  Country: None (occurrence: None)
  Receive Date: 20060404
  Receipt Date: 20051129
  Transmission Date: 20061013
  Serious: No
  Sender: FDA-Public Use
  Company Number: US200511003398

PATIENT
  Age: 64 Year
  Sex: Male

DRUGS (3)
  1. CYMBALTA [Suspect]
     Indication: FEELING ABNORMAL
     Dosage: 60 MG
     Dates: start: 20051129
  2. PROPOXYPHENE (DEXTROPROPOXYPHENE) [Concomitant]
  3. XANAX /USA/(ALPRAZOLAM) [Concomitant]

REACTIONS (6)
  - DISORIENTATION [None]
  - DIZZINESS [None]
  - FEELING ABNORMAL [None]
  - HEADACHE [None]
  - INSOMNIA [None]
  - NAUSEA [None]
